FAERS Safety Report 7047500-6 (Version None)
Quarter: 2010Q4

REPORT INFORMATION
  Report Type: 
  Country: None (occurrence: None)
  Receive Date: 20101008
  Receipt Date: 20100923
  Transmission Date: 20110411
  Serious: Yes (Other)
  Sender: FDA-Public Use
  Company Number: IDA-00440

PATIENT
  Age: 51 Year
  Sex: Female

DRUGS (2)
  1. PROPRANOLOL [Suspect]
     Dosage: 10 MG
  2. NEO-MERCAZOLE TAB [Suspect]
     Dosage: 15 MG DAILY
     Dates: start: 20100720

REACTIONS (4)
  - ALLERGY TO ARTHROPOD BITE [None]
  - OEDEMA PERIPHERAL [None]
  - PRURITUS GENERALISED [None]
  - SWELLING FACE [None]
